FAERS Safety Report 9908123 (Version 1)
Quarter: 2013Q2

REPORT INFORMATION
  Report Type: Spontaneous
  Country: US (occurrence: None)
  Receive Date: 20130305
  Receipt Date: 20130305
  Transmission Date: 20140414
  Serious: Yes (Hospitalization)
  Sender: FDA-Public Use
  Company Number: 163-21880-12041881

PATIENT
  Age: 85 Year
  Sex: Male

DRUGS (12)
  1. REVLIMID (LENALIDOMIDE) (5 MILLIGRAM, CAPSULES) [Suspect]
     Indication: MYELODYSPLASTIC SYNDROME
     Dosage: 5 MG, EVERY OTHER DAY FOR 21 DAYS Q 28 DAYS, PO
     Route: 048
     Dates: start: 20120322, end: 2012
  2. INFUSIONS (ALL OTHER THERAPEUTIC PRODUCTS) (INJECTION FOR INFUSION) [Concomitant]
  3. LISINOPRIL (LISINOPRIL) (UNKNOWN) [Concomitant]
  4. JANUVIA (SITAGLIPTIN PHOSPHATE) (UNKNOWN) [Concomitant]
  5. ZOCOR (SIMVASTATIN) (UNKNOWN) [Concomitant]
  6. LOPRESSOR (METOPROLOL TARTRATE) (UNKNOWN) [Concomitant]
  7. LASIX (FUROSEMIDE) (UNKNOWN) [Concomitant]
  8. SENNA (SENNA) (UNKNOWN) [Concomitant]
  9. POTASSIUM (POTASSIUM) (UNKNOWN) [Concomitant]
  10. SYNTHROID (LEVOTHYROXINE SODIUM) (UNKNOWN) [Concomitant]
  11. GLYBURIDE (GLIBENCLAMIDE) (UNKNOWN) [Concomitant]
  12. ZOFRAN (ONDANSETRON HYDROCHLORIDE) (UNKNOWN) [Concomitant]

REACTIONS (3)
  - Thrombophlebitis superficial [None]
  - Fatigue [None]
  - Drug ineffective [None]
